FAERS Safety Report 5245565-5 (Version None)
Quarter: 2007Q1

REPORT INFORMATION
  Report Type: 
  Country: None (occurrence: None)
  Receive Date: 20070223
  Receipt Date: 20070212
  Transmission Date: 20070707
  Serious: Yes (Other)
  Sender: FDA-Public Use
  Company Number: ES-PFIZER INC-2007003331

PATIENT
  Age: 40 Year
  Sex: Female
  Weight: 65 kg

DRUGS (4)
  1. PREGABALIN [Suspect]
     Indication: NEURALGIA
     Route: 048
     Dates: start: 20061103, end: 20061207
  2. BUPRENORPHINE HCL [Concomitant]
     Route: 062
     Dates: start: 20050920
  3. BACLOFEN [Concomitant]
     Indication: MUSCLE SPASTICITY
     Route: 048
  4. NEURONTIN [Concomitant]
     Indication: MUSCLE SPASTICITY
     Route: 048
     Dates: start: 20061103

REACTIONS (1)
  - MUSCLE SPASTICITY [None]
